FAERS Safety Report 6685370-6 (Version None)
Quarter: 2010Q2

REPORT INFORMATION
  Report Type: 
  Country: None (occurrence: None)
  Receive Date: 20100416
  Receipt Date: 20100204
  Transmission Date: 20101027
  Serious: No
  Sender: FDA-Public Use
  Company Number: US-AMGEN-KDL390714

PATIENT
  Sex: Female

DRUGS (3)
  1. SENSIPAR [Suspect]
     Indication: HYPERPARATHYROIDISM SECONDARY
     Route: 048
  2. PROTONIX [Concomitant]
  3. ACTONEL [Concomitant]

REACTIONS (2)
  - DRUG ADMINISTRATION ERROR [None]
  - THROAT IRRITATION [None]
